FAERS Safety Report 9410597 (Version 1)
Quarter: 2013Q3

REPORT INFORMATION
  Report Type: Report from Study
  Country: US (occurrence: US)
  Receive Date: 20130719
  Receipt Date: 20130719
  Transmission Date: 20140515
  Serious: Yes (Hospitalization, Other)
  Sender: FDA-Public Use
  Company Number: US-BRISTOL-MYERS SQUIBB COMPANY-19103894

PATIENT
  Age: 68 Year
  Sex: Male
  Weight: 67.5 kg

DRUGS (1)
  1. IPILIMUMAB [Suspect]
     Indication: MALIGNANT MELANOMA
     Dosage: TOTAL:700MG?LAST DATE:04JUN2013.
     Route: 042
     Dates: start: 20130604

REACTIONS (2)
  - Colitis [Not Recovered/Not Resolved]
  - Hyponatraemia [Not Recovered/Not Resolved]
